FAERS Safety Report 10561790 (Version 1)
Quarter: 2014Q4

REPORT INFORMATION
  Report Type: Report from Study
  Country: NL (occurrence: NL)
  Receive Date: 20141103
  Receipt Date: 20141103
  Transmission Date: 20150529
  Serious: Yes (Death)
  Sender: FDA-Public Use
  Company Number: NL-AMGEN-NLDSL2014083986

PATIENT
  Age: 91 Year
  Sex: Female

DRUGS (1)
  1. ARANESP [Suspect]
     Active Substance: DARBEPOETIN ALFA
     Indication: NEPHROGENIC ANAEMIA
     Dosage: 0.5 ML(200MCG/ML), Q3WK
     Route: 058
     Dates: start: 20121012, end: 20141029

REACTIONS (1)
  - Death [Fatal]

NARRATIVE: CASE EVENT DATE: 20141029
